FAERS Safety Report 20895709 (Version 1)
Quarter: 2022Q2

REPORT INFORMATION
  Report Type: Spontaneous
  Country: US (occurrence: US)
  Receive Date: 20220531
  Receipt Date: 20220531
  Transmission Date: 20220721
  Serious: Yes (Life-Threatening, Hospitalization)
  Sender: FDA-Public Use
  Company Number: US-drreddys-LIT/USA/22/0150480

PATIENT
  Age: 44 Year
  Sex: Male

DRUGS (5)
  1. DOBUTAMINE HYDROCHLORIDE [Suspect]
     Active Substance: DOBUTAMINE HYDROCHLORIDE
     Indication: Vasoplegia syndrome
  2. EPINEPHRINE [Suspect]
     Active Substance: EPINEPHRINE
     Indication: Vascular resistance systemic decreased
  3. BUMETANIDE [Suspect]
     Active Substance: BUMETANIDE
     Indication: Vascular resistance systemic decreased
  4. CHLOROTHIAZIDE [Suspect]
     Active Substance: CHLOROTHIAZIDE
     Indication: Vascular resistance systemic decreased
     Route: 042
  5. MILRINONE [Suspect]
     Active Substance: MILRINONE
     Indication: Vascular resistance systemic decreased

REACTIONS (1)
  - Drug ineffective [Unknown]
